FAERS Safety Report 4754101-9 (Version None)
Quarter: 2005Q3

REPORT INFORMATION
  Report Type: 
  Country: None (occurrence: None)
  Receive Date: 20050824
  Receipt Date: 20050613
  Transmission Date: 20060218
  Serious: No
  Sender: FDA-Public Use
  Company Number: SUS1-2005-00478

PATIENT
  Age: 37 Year
  Sex: Female
  Weight: 47.6 kg

DRUGS (4)
  1. FOSRENOL [Suspect]
     Indication: HYPERPHOSPHATAEMIA
     Dosage: 1 PILL, 3X/DAY; TID
     Dates: start: 20050609
  2. NORVASC /DEN/ (AMLODIPINE BESILATE) [Concomitant]
  3. ALLEGRA [Concomitant]
  4. RENAL CAPS [Concomitant]

REACTIONS (2)
  - HYPOTENSION [None]
  - WEIGHT INCREASED [None]
